FAERS Safety Report 8993305 (Version 1)
Quarter: 2013Q1

REPORT INFORMATION
  Report Type: Spontaneous
  Country: US (occurrence: US)
  Receive Date: 20130102
  Receipt Date: 20130102
  Transmission Date: 20140127
  Serious: No
  Sender: FDA-Public Use
  Company Number: US-PFIZER INC-2013000272

PATIENT
  Age: 51 Year
  Sex: Male
  Weight: 86.17 kg

DRUGS (2)
  1. CHANTIX [Suspect]
     Indication: SMOKING CESSATION THERAPY
     Dosage: UNK
  2. CHANTIX [Suspect]
     Dosage: 1 MG, 2X/DAY
     Dates: start: 201211

REACTIONS (5)
  - Drug administration error [Unknown]
  - Nausea [Unknown]
  - Headache [Unknown]
  - Constipation [Unknown]
  - Abnormal dreams [Unknown]
